FAERS Safety Report 11405605 (Version 1)
Quarter: 2015Q3

REPORT INFORMATION
  Report Type: Spontaneous
  Country: US (occurrence: US)
  Receive Date: 20150821
  Receipt Date: 20150821
  Transmission Date: 20151125
  Serious: No
  Sender: FDA-Public Use
  Company Number: US-PFIZER INC-2015278050

PATIENT
  Sex: Male

DRUGS (5)
  1. QUINIDEX [Suspect]
     Active Substance: QUINIDINE SULFATE
     Dosage: UNK
  2. TRENTAL [Suspect]
     Active Substance: PENTOXIFYLLINE
     Dosage: UNK
  3. INDERAL LA [Suspect]
     Active Substance: PROPRANOLOL HYDROCHLORIDE
     Dosage: UNK
  4. PROCAN SR [Suspect]
     Active Substance: PROCAINAMIDE HYDROCHLORIDE
     Dosage: UNK
  5. TONOCARD [Suspect]
     Active Substance: TOCAINIDE HYDROCHLORIDE
     Dosage: UNK

REACTIONS (1)
  - Drug hypersensitivity [Unknown]
